FAERS Safety Report 13151647 (Version 1)
Quarter: 2017Q1

REPORT INFORMATION
  Report Type: Report from Study
  Country: CA (occurrence: CA)
  Receive Date: 20170125
  Receipt Date: 20170125
  Transmission Date: 20170428
  Serious: Yes (Other)
  Sender: FDA-Public Use
  Company Number: CA-JNJFOC-20170103047

PATIENT
  Age: 50 Year
  Sex: Female
  Weight: 84 kg

DRUGS (2)
  1. REMICADE [Suspect]
     Active Substance: INFLIXIMAB
     Indication: CROHN^S DISEASE
     Route: 042
     Dates: start: 20130522
  2. REMICADE [Suspect]
     Active Substance: INFLIXIMAB
     Indication: RHEUMATOID ARTHRITIS
     Route: 042
     Dates: start: 20130522

REACTIONS (10)
  - Influenza [Unknown]
  - Sinusitis [Unknown]
  - Fatigue [Unknown]
  - Systemic lupus erythematosus [Unknown]
  - Dental operation [Unknown]
  - Headache [Unknown]
  - Altered state of consciousness [Unknown]
  - Hypertension [Unknown]
  - Abdominal pain upper [Unknown]
  - Feeling hot [Unknown]

NARRATIVE: CASE EVENT DATE: 20161225
